FAERS Safety Report 25372001 (Version 1)
Quarter: 2025Q2

REPORT INFORMATION
  Report Type: Spontaneous
  Country: PT (occurrence: PT)
  Receive Date: 20250529
  Receipt Date: 20250529
  Transmission Date: 20250717
  Serious: Yes (Hospitalization)
  Sender: RANBAXY
  Company Number: PT-SUN PHARMACEUTICAL INDUSTRIES LTD-2025RR-509588

PATIENT
  Age: 47 Year
  Sex: Male

DRUGS (4)
  1. AMPHOTERICIN B [Suspect]
     Active Substance: AMPHOTERICIN B
     Indication: HIV infection
     Dosage: 350 MILLIGRAM, QD
     Route: 065
     Dates: start: 201905
  2. AMPHOTERICIN B [Suspect]
     Active Substance: AMPHOTERICIN B
     Dosage: 30 MILLIGRAM, FORTNIGHT
     Route: 065
  3. MILTEFOSINE [Suspect]
     Active Substance: MILTEFOSINE
     Indication: Pancytopenia
     Dosage: 50 MILLIGRAM, TID, A FIVE-DAY COURSE
     Route: 065
     Dates: start: 201905, end: 202007
  4. MILTEFOSINE [Suspect]
     Active Substance: MILTEFOSINE
     Route: 065

REACTIONS (1)
  - Drug resistance [Unknown]
